FAERS Safety Report 14714235 (Version 2)
Quarter: 2018Q2

REPORT INFORMATION
  Report Type: Spontaneous
  Country: GB (occurrence: GB)
  Receive Date: 20180404
  Receipt Date: 20180502
  Transmission Date: 20180711
  Serious: Yes (Other)
  Sender: FDA-Public Use
  Company Number: GB-GLAXOSMITHKLINE-GB2018GSK052998

PATIENT
  Sex: Female

DRUGS (1)
  1. ADARTREL [Suspect]
     Active Substance: ROPINIROLE
     Indication: RESTLESS LEGS SYNDROME
     Dosage: 4 MG, UNK
     Dates: start: 2002, end: 2016

REACTIONS (6)
  - Pain in extremity [Unknown]
  - Condition aggravated [Unknown]
  - Restless legs syndrome [Unknown]
  - Withdrawal syndrome [Unknown]
  - Suicidal ideation [Unknown]
  - Anxiety [Unknown]

NARRATIVE: CASE EVENT DATE: 2015
